FAERS Safety Report 5482072-9 (Version None)
Quarter: 2007Q4

REPORT INFORMATION
  Report Type: 
  Country: None (occurrence: None)
  Receive Date: 20071005
  Receipt Date: 20070925
  Transmission Date: 20080405
  Serious: Yes (Other)
  Sender: FDA-Public Use
  Company Number: 2007331929

PATIENT
  Sex: Female

DRUGS (1)
  1. RHINOPRONT KOMBI (PSEUDOEPHEDRINE, TRIPROLIDINE) [Suspect]
     Dosage: ORAL
     Route: 048
     Dates: start: 20070920

REACTIONS (3)
  - CARDIOVASCULAR DISORDER [None]
  - NAUSEA [None]
  - VISUAL ACUITY REDUCED [None]
